FAERS Safety Report 8666038 (Version 3)
Quarter: 2012Q4

REPORT INFORMATION
  Report Type: 
  Country: US (occurrence: US)
  Receive Date: 20120716
  Receipt Date: 20121009
  Transmission Date: 20130627
  Serious: Yes (Other)
  Sender: FDA-Public Use
  Company Number: US-PFIZER INC-2012164784

PATIENT
  Sex: Female

DRUGS (5)
  1. LYRICA [Suspect]
     Indication: FIBROMYALGIA
     Dosage: 75 mg, 3x/day
     Dates: end: 2011
  2. LYRICA [Suspect]
     Indication: NEUROPATHY PERIPHERAL
  3. XALATAN [Suspect]
     Dosage: UNK
  4. GABAPENTIN [Suspect]
     Indication: FIBROMYALGIA
     Dosage: 300 mg, 3x/day
     Dates: start: 20110921
  5. GABAPENTIN [Suspect]
     Indication: NEUROPATHY PERIPHERAL

REACTIONS (3)
  - Cardiac failure congestive [Unknown]
  - Hearing impaired [Not Recovered/Not Resolved]
  - Hypertension [Unknown]
